FAERS Safety Report 4436943-2 (Version None)
Quarter: 2004Q3

REPORT INFORMATION
  Report Type: 
  Country: None (occurrence: None)
  Receive Date: 20040827
  Receipt Date: 20040812
  Transmission Date: 20050211
  Serious: Yes (Congenital Anomaly, Other)
  Sender: FDA-Public Use
  Company Number: 2004-0007278

PATIENT
  Sex: Male

DRUGS (7)
  1. VIREAD [Suspect]
     Indication: HIV INFECTION
     Dosage: 1 IN 1 D, ORAL
     Route: 048
     Dates: start: 20030301
  2. EPIVIR [Concomitant]
  3. NEVIRAPINE (NEVIRAPINE) [Concomitant]
  4. SUSTIVA [Concomitant]
  5. FOLATE SUPPLEMENT (FOLIC ACID) [Concomitant]
  6. NEURONTIN [Concomitant]
  7. SEPTRA [Concomitant]

REACTIONS (4)
  - ARNOLD-CHIARI MALFORMATION [None]
  - CAESAREAN SECTION [None]
  - DRUG EXPOSURE DURING PREGNANCY [None]
  - MENINGOMYELOCELE [None]
